FAERS Safety Report 11985528 (Version 2)
Quarter: 2016Q2

REPORT INFORMATION
  Report Type: Report from Study
  Country: GB (occurrence: GB)
  Receive Date: 20160201
  Receipt Date: 20160429
  Transmission Date: 20160815
  Serious: Yes (Hospitalization, Other)
  Sender: FDA-Public Use
  Company Number: GB-TEVA-629053ACC

PATIENT
  Age: 54 Year
  Sex: Female
  Weight: 54.03 kg

DRUGS (1)
  1. COPAXONE [Suspect]
     Active Substance: GLATIRAMER ACETATE
     Dosage: 20 MILLIGRAM/MILLILITERS DAILY;
     Route: 058
     Dates: start: 20160106, end: 20160118

REACTIONS (7)
  - Loss of consciousness [Recovering/Resolving]
  - Rash pruritic [Recovered/Resolved]
  - Malaise [Recovered/Resolved]
  - Rash generalised [Recovered/Resolved]
  - Syncope [Recovered/Resolved]
  - Fall [Recovered/Resolved]
  - Erythema [Recovered/Resolved]

NARRATIVE: CASE EVENT DATE: 20160116
